FAERS Safety Report 14031069 (Version 2)
Quarter: 2017Q4

REPORT INFORMATION
  Report Type: Report from Study
  Country: US (occurrence: US)
  Receive Date: 20171002
  Receipt Date: 20171010
  Transmission Date: 20180321
  Serious: No
  Sender: FDA-Public Use
  Company Number: US-ASTRAZENECA-2017SE98873

PATIENT
  Age: 49 Year
  Sex: Female
  Weight: 70.3 kg

DRUGS (6)
  1. GABAPENTIN. [Concomitant]
     Active Substance: GABAPENTIN
     Indication: NECK PAIN
     Route: 048
     Dates: start: 201703, end: 20170820
  2. CYCLOBENZAPRINE. [Concomitant]
     Active Substance: CYCLOBENZAPRINE
     Indication: MUSCLE SPASMS
     Dosage: 5 MG ,3 TO 4 TIMES A WEEK AT NIGHT
     Route: 048
     Dates: start: 201612
  3. SYMBICORT [Suspect]
     Active Substance: BUDESONIDE\FORMOTEROL FUMARATE DIHYDRATE
     Indication: CHRONIC OBSTRUCTIVE PULMONARY DISEASE
     Dosage: 160, 1 PUFF TWICE A DAY,
     Route: 055
     Dates: start: 2014
  4. DULOXETINE. [Concomitant]
     Active Substance: DULOXETINE
     Indication: DEPRESSION
     Dosage: 30 MG UNKNWON
     Route: 048
     Dates: start: 20170808
  5. CARBAMAZEPINE. [Concomitant]
     Active Substance: CARBAMAZEPINE
     Route: 048
     Dates: start: 201706, end: 201708
  6. DULOXETINE. [Concomitant]
     Active Substance: DULOXETINE
     Indication: DEPRESSION
     Route: 048
     Dates: start: 20170808

REACTIONS (19)
  - Carpal tunnel syndrome [Unknown]
  - Sinusitis [Unknown]
  - Tendonitis [Unknown]
  - Injury [Unknown]
  - Headache [Unknown]
  - Intervertebral disc protrusion [Unknown]
  - Insurance issue [Unknown]
  - Intentional product misuse [Unknown]
  - Neck injury [Unknown]
  - Bone density abnormal [Unknown]
  - Neck pain [Unknown]
  - Epicondylitis [Unknown]
  - Dyspnoea [Unknown]
  - Depression [Unknown]
  - Bursitis [Unknown]
  - Drug dose omission [Unknown]
  - Off label use [Unknown]
  - Back injury [Unknown]
  - Arthritis [Unknown]

NARRATIVE: CASE EVENT DATE: 2016
